FAERS Safety Report 19247146 (Version 2)
Quarter: 2021Q2

REPORT INFORMATION
  Report Type: Spontaneous
  Country: IN (occurrence: IN)
  Receive Date: 20210512
  Receipt Date: 20210603
  Transmission Date: 20210717
  Serious: Yes (Hospitalization)
  Sender: FDA-Public Use
  Company Number: IN-PFIZER INC-2021487601

PATIENT
  Age: 21 Year
  Sex: Male

DRUGS (2)
  1. INONZA [Suspect]
     Active Substance: INOTUZUMAB OZOGAMICIN
     Indication: B-CELL TYPE ACUTE LEUKAEMIA
     Dosage: 1 MG, 1X/DAY (ALSO REPORTED AS 2 VIALS,1 MG EACH)
     Route: 042
     Dates: start: 20210420
  2. INONZA [Suspect]
     Active Substance: INOTUZUMAB OZOGAMICIN
     Dosage: 1.6 MG, ONCE DAILY, CYCLIC (D1 2 VIALS, D8 1 VIAL, D15 1 VIAL)
     Route: 042
     Dates: start: 20210515

REACTIONS (1)
  - COVID-19 [Unknown]

NARRATIVE: CASE EVENT DATE: 202104
